FAERS Safety Report 12375563 (Version 2)
Quarter: 2016Q3

REPORT INFORMATION
  Report Type: Spontaneous
  Country: US (occurrence: US)
  Receive Date: 20160517
  Receipt Date: 20160901
  Transmission Date: 20161109
  Serious: No
  Sender: FDA-Public Use
  Company Number: US-RELYPSA-RLY2016000036

PATIENT
  Age: 57 Year
  Sex: Female

DRUGS (11)
  1. VELTASSA [Suspect]
     Active Substance: PATIROMER
     Indication: HYPERKALAEMIA
     Dosage: 8.4 G, QD
     Route: 048
     Dates: start: 20160128
  2. CARVEDILOL. [Concomitant]
     Active Substance: CARVEDILOL
  3. INSULIN [Concomitant]
     Active Substance: INSULIN NOS
  4. VITAMIN D                          /00107901/ [Concomitant]
     Active Substance: ERGOCALCIFEROL
  5. TOVIAZ [Concomitant]
     Active Substance: FESOTERODINE FUMARATE
  6. FUROSEMIDE. [Concomitant]
     Active Substance: FUROSEMIDE
  7. NEXIUM [Concomitant]
     Active Substance: ESOMEPRAZOLE MAGNESIUM
  8. GABAPENTIN. [Concomitant]
     Active Substance: GABAPENTIN
  9. FERROUS SULFATE. [Concomitant]
     Active Substance: FERROUS SULFATE
  10. TRAZODONE [Concomitant]
     Active Substance: TRAZODONE HYDROCHLORIDE
  11. TRAMADOL. [Concomitant]
     Active Substance: TRAMADOL

REACTIONS (1)
  - Constipation [Unknown]
